FAERS Safety Report 20931178 (Version 1)
Quarter: 2022Q2

REPORT INFORMATION
  Report Type: Spontaneous
  Country: US (occurrence: US)
  Receive Date: 20220608
  Receipt Date: 20220608
  Transmission Date: 20220720
  Serious: No
  Sender: FDA-Public Use
  Company Number: US-UNITED THERAPEUTICS-UNT-2022-012290

PATIENT
  Sex: Female

DRUGS (2)
  1. REMODULIN [Suspect]
     Active Substance: TREPROSTINIL
     Indication: Pulmonary arterial hypertension
     Dosage: UNK, CONTINUING
     Route: 041
     Dates: start: 202102
  2. REMODULIN [Suspect]
     Active Substance: TREPROSTINIL
     Dosage: 0.159 ?G/KG, CONTINUING (PUMP RATE 37MG/24HRS)
     Route: 041

REACTIONS (2)
  - Palpitations [Unknown]
  - Oxygen saturation decreased [Unknown]
